FAERS Safety Report 24215193 (Version 1)
Quarter: 2024Q3

REPORT INFORMATION
  Report Type: Report from Study
  Country: CA (occurrence: CA)
  Receive Date: 20240816
  Receipt Date: 20240816
  Transmission Date: 20241016
  Serious: Yes (Other)
  Sender: TAKEDA
  Company Number: CA-TAKEDA-2024TUS081718

PATIENT
  Sex: Female

DRUGS (7)
  1. VEDOLIZUMAB [Suspect]
     Active Substance: VEDOLIZUMAB
     Indication: Crohn^s disease
     Dosage: 300 MILLIGRAM
     Route: 042
     Dates: start: 20240812
  2. SYNTHROID [Concomitant]
     Active Substance: LEVOTHYROXINE SODIUM
     Dosage: 100 MICROGRAM
  3. SULFATRIM [Concomitant]
     Active Substance: SULFAMETHOXAZOLE\TRIMETHOPRIM
     Dosage: UNK UNK, BID
  4. BETADERM [Concomitant]
     Active Substance: BETAMETHASONE VALERATE
     Dosage: UNK
     Route: 061
  5. LENVIMA [Concomitant]
     Active Substance: LENVATINIB
     Dosage: 20 MILLIGRAM
  6. PEMBROLIZUMAB [Concomitant]
     Active Substance: PEMBROLIZUMAB
     Dosage: UNK
  7. PREDNISONE [Concomitant]
     Active Substance: PREDNISONE
     Dosage: UNK

REACTIONS (1)
  - Crohn^s disease [Unknown]
